FAERS Safety Report 20510207 (Version 2)
Quarter: 2022Q1

REPORT INFORMATION
  Report Type: Spontaneous
  Country: JP (occurrence: JP)
  Receive Date: 20220224
  Receipt Date: 20220317
  Transmission Date: 20220423
  Serious: Yes (Other)
  Sender: FDA-Public Use
  Company Number: JP-SA-2022SA055384

PATIENT
  Age: 17 Year
  Sex: Male

DRUGS (2)
  1. DUPIXENT [Suspect]
     Active Substance: DUPILUMAB
     Indication: Dermatitis atopic
     Dosage: 300 MG, QOW
     Route: 058
     Dates: start: 202201, end: 2022
  2. DUPIXENT [Suspect]
     Active Substance: DUPILUMAB
     Dosage: 300 MG, QOW
     Route: 058
     Dates: start: 20220307

REACTIONS (6)
  - Erythema multiforme [Recovered/Resolved]
  - Rash [Recovered/Resolved]
  - Herpes virus infection [Unknown]
  - Lip swelling [Unknown]
  - Lip erosion [Unknown]
  - Lip scab [Unknown]

NARRATIVE: CASE EVENT DATE: 20220101
